FAERS Safety Report 16305444 (Version 1)
Quarter: 2019Q2

REPORT INFORMATION
  Report Type: Spontaneous
  Country: US (occurrence: US)
  Receive Date: 20190408
  Receipt Date: 20190408
  Transmission Date: 20190711
  Serious: No
  Sender: FDA-Public Use
  Company Number: None

PATIENT
  Age: 83 Year
  Sex: Male

DRUGS (1)
  1. ABIRATERONE  250MG TAB [Suspect]
     Active Substance: ABIRATERONE
     Dates: start: 201807

REACTIONS (1)
  - Hot flush [None]

NARRATIVE: CASE EVENT DATE: 20190408
